FAERS Safety Report 6326033-6 (Version None)
Quarter: 2009Q3

REPORT INFORMATION
  Report Type: 
  Country: None (occurrence: None)
  Receive Date: 20090824
  Receipt Date: 20090819
  Transmission Date: 20100115
  Serious: Yes (Other)
  Sender: FDA-Public Use
  Company Number: FR-ROCHE-651413

PATIENT
  Sex: Female

DRUGS (2)
  1. XELODA [Suspect]
     Route: 065
  2. HERCEPTIN [Suspect]
     Route: 065

REACTIONS (2)
  - OEDEMA PERIPHERAL [None]
  - WEIGHT INCREASED [None]
